FAERS Safety Report 7671588-2 (Version None)
Quarter: 2011Q3

REPORT INFORMATION
  Report Type: 
  Country: None (occurrence: None)
  Receive Date: 20110803
  Receipt Date: 20110708
  Transmission Date: 20111222
  Serious: Yes (Other)
  Sender: FDA-Public Use
  Company Number: 2011PROUSA00315

PATIENT
  Age: 76 Year
  Sex: Male
  Weight: 72.1 kg

DRUGS (11)
  1. PROVENGE [Suspect]
     Indication: PROSTATE CANCER METASTATIC
     Dosage: 250 ML, SINGLE, INTRAVENOUS
     Route: 042
     Dates: start: 20101122, end: 20101122
  2. ASPIRIN [Concomitant]
  3. CENTRUM SILVER (ASCORBIC ACID, CALCIUM, MINERALS NOS, RETINOL, TOCOPHE [Concomitant]
  4. LUPRON [Concomitant]
  5. PROVENGE [Suspect]
     Dosage: 250 MG, SINGLE, INTRAVENOUS
     Route: 042
     Dates: start: 20110114, end: 20110114
  6. IBUPROFEN [Concomitant]
  7. ZETIA [Concomitant]
  8. PRILOSEC [Concomitant]
  9. CALCIUM (CALCIUM) [Concomitant]
  10. ZOMETA [Concomitant]
  11. PROVENGE [Suspect]
     Dosage: 250 ML, SINGLEL INTRAVENOUS
     Route: 042
     Dates: start: 20101213, end: 20101213

REACTIONS (4)
  - DIABETES MELLITUS [None]
  - DEEP VEIN THROMBOSIS [None]
  - ABDOMINAL PAIN [None]
  - BLOOD GLUCOSE FLUCTUATION [None]
